FAERS Safety Report 9421997 (Version 1)
Quarter: 2013Q3

REPORT INFORMATION
  Report Type: Spontaneous
  Country: US (occurrence: US)
  Receive Date: 20130726
  Receipt Date: 20130726
  Transmission Date: 20140515
  Serious: Yes (Hospitalization, Other)
  Sender: FDA-Public Use
  Company Number: US-BAYER-2013-088098

PATIENT
  Age: 44 Year
  Sex: Female

DRUGS (6)
  1. YAZ [Suspect]
  2. YASMIN [Suspect]
  3. CYMBALTA [Concomitant]
     Dosage: 60 MG, UNK
  4. KLOR-CON [Concomitant]
     Dosage: UNK
     Dates: start: 20071230
  5. FLUCONAZOLE [Concomitant]
     Dosage: UNK
     Dates: start: 20071101
  6. AMBIEN [Concomitant]

REACTIONS (2)
  - Deep vein thrombosis [None]
  - Deep vein thrombosis [None]
